FAERS Safety Report 12251774 (Version 1)
Quarter: 2016Q2

REPORT INFORMATION
  Report Type: Spontaneous
  Country: IT (occurrence: IT)
  Receive Date: 20160411
  Receipt Date: 20160411
  Transmission Date: 20160815
  Serious: Yes (Hospitalization)
  Sender: FDA-Public Use
  Company Number: IT-009507513-1604ITA003630

PATIENT
  Age: 67 Year
  Sex: Male

DRUGS (1)
  1. REBETOL [Suspect]
     Active Substance: RIBAVIRIN
     Indication: HEPATITIS C ANTIBODY POSITIVE
     Route: 048

REACTIONS (2)
  - Anaemia [Recovered/Resolved]
  - Hepatic encephalopathy [Recovered/Resolved]

NARRATIVE: CASE EVENT DATE: 20160304
